FAERS Safety Report 5410941-4 (Version None)
Quarter: 2007Q3

REPORT INFORMATION
  Report Type: 
  Country: None (occurrence: None)
  Receive Date: 20070810
  Receipt Date: 20070801
  Transmission Date: 20080115
  Serious: Yes (Hospitalization)
  Sender: FDA-Public Use
  Company Number: US-ABBOTT-07P-163-0373068-00

PATIENT
  Sex: Male
  Weight: 109 kg

DRUGS (19)
  1. TRICOR [Suspect]
     Indication: BLOOD TRIGLYCERIDES INCREASED
     Route: 048
     Dates: start: 20060101, end: 20070625
  2. WARFARIN SODIUM [Concomitant]
     Indication: DRUG USE FOR UNKNOWN INDICATION
  3. CLOPIDOGREL [Concomitant]
     Indication: DRUG USE FOR UNKNOWN INDICATION
  4. UNSPECIFIED MEDICATION [Concomitant]
     Indication: DRUG USE FOR UNKNOWN INDICATION
  5. INSULIN ASPART [Concomitant]
     Indication: TYPE 2 DIABETES MELLITUS
  6. INSULIN GLARGINE [Concomitant]
     Indication: TYPE 2 DIABETES MELLITUS
  7. FUROSEMIDE [Concomitant]
     Indication: DRUG USE FOR UNKNOWN INDICATION
  8. SPIRONOLACTONE [Concomitant]
     Indication: DRUG USE FOR UNKNOWN INDICATION
  9. HYDROXYZINE [Concomitant]
     Indication: PRURITUS
  10. MIDRID [Concomitant]
     Indication: HEADACHE
  11. IRBESARTAN [Concomitant]
     Indication: HYPERTENSION
  12. OMEPRAZOLE [Concomitant]
     Indication: REFLUX OESOPHAGITIS
     Route: 048
  13. METFORMIN HCL [Concomitant]
     Indication: DIABETES MELLITUS
  14. ALLOPURINOL [Concomitant]
     Indication: DRUG USE FOR UNKNOWN INDICATION
  15. DILTIAZEM HYDROCHLORIDE [Concomitant]
     Indication: HYPERTENSION
  16. METOPROLOL SUCCINATE [Concomitant]
     Indication: HYPERTENSION
  17. ACETYLSALICYLIC ACID SRT [Concomitant]
     Indication: DRUG USE FOR UNKNOWN INDICATION
  18. WARFARIN SODIUM [Concomitant]
  19. ROSUVASTATIN [Concomitant]
     Indication: HYPERLIPIDAEMIA

REACTIONS (5)
  - BLOOD CALCIUM INCREASED [None]
  - INTERCAPILLARY GLOMERULOSCLEROSIS [None]
  - MICROALBUMINURIA [None]
  - RENAL FAILURE [None]
  - RENAL IMPAIRMENT [None]
